FAERS Safety Report 7551845-0 (Version None)
Quarter: 2011Q2

REPORT INFORMATION
  Report Type: 
  Country: None (occurrence: None)
  Receive Date: 20110616
  Receipt Date: 20110607
  Transmission Date: 20111010
  Serious: Yes (Hospitalization)
  Sender: FDA-Public Use
  Company Number: FR-ASTRAZENECA-2011SE35454

PATIENT
  Age: 69 Year
  Sex: Male

DRUGS (11)
  1. RAMIPRIL [Suspect]
     Indication: MYOCARDIAL ISCHAEMIA
     Route: 048
  2. ASPIRIN [Concomitant]
     Indication: MYOCARDIAL ISCHAEMIA
     Route: 048
  3. LASIX [Suspect]
     Indication: MYOCARDIAL ISCHAEMIA
     Route: 048
  4. GLUCOPHAGE [Suspect]
     Indication: TYPE 2 DIABETES MELLITUS
     Route: 048
  5. PRAVASTATIN [Concomitant]
     Indication: HYPERCHOLESTEROLAEMIA
     Route: 048
  6. MIRTAZAPINE [Concomitant]
     Indication: DEPRESSION
     Route: 048
  7. ATARAX [Suspect]
     Indication: DEPRESSION
     Route: 048
  8. LYRICA [Concomitant]
     Indication: PAIN
     Route: 048
  9. TENORMIN [Suspect]
     Indication: MYOCARDIAL ISCHAEMIA
     Route: 048
  10. BUSPAR [Suspect]
     Indication: DEPRESSION
     Route: 048
  11. TRIMEPRAZINE TARTRATE [Concomitant]
     Indication: DEPRESSION
     Route: 048

REACTIONS (2)
  - SUICIDE ATTEMPT [None]
  - HYPOGLYCAEMIA [None]
